FAERS Safety Report 4762025-6 (Version None)
Quarter: 2005Q3

REPORT INFORMATION
  Report Type: 
  Country: None (occurrence: None)
  Receive Date: 20050831
  Receipt Date: 20050519
  Transmission Date: 20060218
  Serious: No
  Sender: FDA-Public Use
  Company Number: PHEH2005US05765

PATIENT
  Age: 62 Year
  Sex: Female
  Weight: 151.0478 kg

DRUGS (4)
  1. ENABLEX [Suspect]
     Indication: URINARY INCONTINENCE
     Dosage: 7.5 MG QD
     Dates: start: 20050518, end: 20050519
  2. NASONEX [Concomitant]
  3. SYNTHROID [Concomitant]
  4. FLONASE [Concomitant]

REACTIONS (2)
  - ABDOMINAL PAIN [None]
  - METRORRHAGIA [None]
